FAERS Safety Report 6712417-0 (Version None)
Quarter: 2010Q2

REPORT INFORMATION
  Report Type: 
  Country: None (occurrence: None)
  Receive Date: 20100506
  Receipt Date: 20100422
  Transmission Date: 20101027
  Serious: Yes (Hospitalization)
  Sender: FDA-Public Use
  Company Number: IT-RANBAXY-2010RR-33418

PATIENT
  Sex: Female

DRUGS (1)
  1. AMOXICILLINA E ACIDO CLAVULANICO RANBAXY 875MG+125MG COMPRESSE RIVESTI [Suspect]
     Indication: TOOTHACHE
     Dosage: 1 G, BID
     Route: 048
     Dates: start: 20100402, end: 20100404

REACTIONS (3)
  - DYSPNOEA [None]
  - ERYTHEMA [None]
  - PHARYNGEAL OEDEMA [None]
